FAERS Safety Report 5894482-6 (Version None)
Quarter: 2008Q3

REPORT INFORMATION
  Report Type: 
  Country: None (occurrence: None)
  Receive Date: 20080922
  Receipt Date: 20080904
  Transmission Date: 20090109
  Serious: Yes (Other)
  Sender: FDA-Public Use
  Company Number: 8029343

PATIENT
  Age: 19 Year
  Sex: Female
  Weight: 55.45 kg

DRUGS (6)
  1. TUSSIONEX [Suspect]
     Indication: BRONCHITIS
     Dosage: 5 ML /D PO
     Route: 048
     Dates: start: 20080116, end: 20080117
  2. TUSSIONEX [Suspect]
     Indication: COUGH
     Dosage: 5 ML /D PO
     Route: 048
     Dates: start: 20080116, end: 20080117
  3. ADVAIR DISKUS 100/50 [Concomitant]
  4. CLINDAMYCIN HCL [Concomitant]
  5. MUCINEX [Concomitant]
  6. ALBUTEROL [Concomitant]

REACTIONS (5)
  - FACE OEDEMA [None]
  - OEDEMA PERIPHERAL [None]
  - POISONING [None]
  - RASH [None]
  - URTICARIA [None]
